FAERS Safety Report 14506479 (Version 1)
Quarter: 2018Q1

REPORT INFORMATION
  Report Type: Spontaneous
  Country: US (occurrence: US)
  Receive Date: 20180208
  Receipt Date: 20180208
  Transmission Date: 20180509
  Serious: Yes (Hospitalization, Other)
  Sender: FDA-Public Use
  Company Number: None

PATIENT
  Age: 39 Year
  Sex: Male
  Weight: 106.14 kg

DRUGS (6)
  1. TRAZODONE [Concomitant]
     Active Substance: TRAZODONE HYDROCHLORIDE
  2. CARVEDILOL. [Concomitant]
     Active Substance: CARVEDILOL
  3. OMEPRAZOLE. [Concomitant]
     Active Substance: OMEPRAZOLE
  4. ACYCLOVIR. [Concomitant]
     Active Substance: ACYCLOVIR
  5. LOSARTAN 25MG TAB AUROBINDO GNC 14850 [Suspect]
     Active Substance: LOSARTAN
     Indication: CARDIAC FAILURE CONGESTIVE
     Route: 048
     Dates: start: 20171212
  6. BISPIDINE [Concomitant]

REACTIONS (8)
  - Viral infection [None]
  - Pain [None]
  - Pain in extremity [None]
  - Pyrexia [None]
  - Haematuria [None]
  - Headache [None]
  - Leukopenia [None]
  - Arthralgia [None]

NARRATIVE: CASE EVENT DATE: 20171228
